FAERS Safety Report 11221719 (Version 2)
Quarter: 2016Q1

REPORT INFORMATION
  Report Type: Spontaneous
  Country: GB (occurrence: GB)
  Receive Date: 20150626
  Receipt Date: 20160303
  Transmission Date: 20160525
  Serious: Yes (Life-Threatening, Hospitalization)
  Sender: FDA-Public Use
  Company Number: GB-SA-2015SA089444

PATIENT
  Sex: Female
  Weight: 4.6 kg

DRUGS (18)
  1. APIDRA [Suspect]
     Active Substance: INSULIN GLULISINE
     Indication: MATERNAL EXPOSURE TIMING UNSPECIFIED
     Dosage: DOSE:39.9 UNIT(S)
     Route: 064
     Dates: start: 20140909, end: 20141101
  2. APIDRA [Suspect]
     Active Substance: INSULIN GLULISINE
     Indication: MATERNAL EXPOSURE TIMING UNSPECIFIED
     Dosage: DOSE:44.3 UNIT(S)
     Route: 064
     Dates: start: 20141102, end: 20141117
  3. APIDRA [Suspect]
     Active Substance: INSULIN GLULISINE
     Indication: TYPE 1 DIABETES MELLITUS
     Dosage: DOSE:50.8 UNIT(S)
     Route: 064
     Dates: start: 20141118, end: 20141215
  4. APIDRA [Suspect]
     Active Substance: INSULIN GLULISINE
     Indication: TYPE 1 DIABETES MELLITUS
     Dosage: DOSE:39.8 UNIT(S)
     Route: 064
     Dates: start: 20140903, end: 20140908
  5. APIDRA [Suspect]
     Active Substance: INSULIN GLULISINE
     Indication: TYPE 1 DIABETES MELLITUS
     Dosage: DOSE:66.7 UNIT(S)
     Route: 064
     Dates: start: 20141228, end: 20150125
  6. APIDRA [Suspect]
     Active Substance: INSULIN GLULISINE
     Indication: MATERNAL EXPOSURE TIMING UNSPECIFIED
     Dosage: DOSE:61.3 UNIT(S)
     Route: 064
     Dates: start: 20141216, end: 20141227
  7. FOLIC ACID. [Concomitant]
     Active Substance: FOLIC ACID
     Dates: start: 20140423, end: 20150125
  8. APIDRA [Suspect]
     Active Substance: INSULIN GLULISINE
     Indication: MATERNAL EXPOSURE TIMING UNSPECIFIED
     Dosage: DOSE:37.3 UNIT(S)
     Route: 064
     Dates: start: 20140423, end: 20140902
  9. APIDRA [Suspect]
     Active Substance: INSULIN GLULISINE
     Indication: MATERNAL EXPOSURE TIMING UNSPECIFIED
     Dosage: DOSE:66.7 UNIT(S)
     Route: 063
     Dates: start: 20150125, end: 20160128
  10. LEVOTHYROXINE. [Concomitant]
     Active Substance: LEVOTHYROXINE
     Dates: start: 20140423, end: 20150125
  11. APIDRA [Suspect]
     Active Substance: INSULIN GLULISINE
     Indication: MATERNAL EXPOSURE TIMING UNSPECIFIED
     Dosage: DOSE:39.8 UNIT(S)
     Route: 064
     Dates: start: 20140903, end: 20140908
  12. APIDRA [Suspect]
     Active Substance: INSULIN GLULISINE
     Indication: TYPE 1 DIABETES MELLITUS
     Dosage: DOSE:44.3 UNIT(S)
     Route: 064
     Dates: start: 20141102, end: 20141117
  13. APIDRA [Suspect]
     Active Substance: INSULIN GLULISINE
     Indication: TYPE 1 DIABETES MELLITUS
     Dosage: DOSE:61.3 UNIT(S)
     Route: 064
     Dates: start: 20141216, end: 20141227
  14. APIDRA [Suspect]
     Active Substance: INSULIN GLULISINE
     Indication: TYPE 1 DIABETES MELLITUS
     Dosage: DOSE:66.7 UNIT(S)
     Route: 063
     Dates: start: 20150125, end: 20160128
  15. APIDRA [Suspect]
     Active Substance: INSULIN GLULISINE
     Indication: TYPE 1 DIABETES MELLITUS
     Dosage: DOSE:37.3 UNIT(S)
     Route: 064
     Dates: start: 20140423, end: 20140902
  16. APIDRA [Suspect]
     Active Substance: INSULIN GLULISINE
     Indication: MATERNAL EXPOSURE TIMING UNSPECIFIED
     Dosage: DOSE:66.7 UNIT(S)
     Route: 064
     Dates: start: 20141228, end: 20150125
  17. APIDRA [Suspect]
     Active Substance: INSULIN GLULISINE
     Indication: TYPE 1 DIABETES MELLITUS
     Dosage: DOSE:39.9 UNIT(S)
     Route: 064
     Dates: start: 20140909, end: 20141101
  18. APIDRA [Suspect]
     Active Substance: INSULIN GLULISINE
     Indication: MATERNAL EXPOSURE TIMING UNSPECIFIED
     Dosage: DOSE:50.8 UNIT(S)
     Route: 064
     Dates: start: 20141118, end: 20141215

REACTIONS (4)
  - Unresponsive to stimuli [Recovered/Resolved]
  - Foetal exposure during pregnancy [Unknown]
  - Hypoglycaemia neonatal [Recovered/Resolved]
  - Jaundice neonatal [Recovered/Resolved]

NARRATIVE: CASE EVENT DATE: 20140423
